FAERS Safety Report 5218562-3 (Version None)
Quarter: 2007Q1

REPORT INFORMATION
  Report Type: 
  Country: None (occurrence: None)
  Receive Date: 20070122
  Receipt Date: 20070118
  Transmission Date: 20070707
  Serious: Yes (Death)
  Sender: FDA-Public Use
  Company Number: 229746

PATIENT
  Age: 86 Year
  Sex: Female

DRUGS (1)
  1. METALYSE [Suspect]
     Indication: THROMBOLYSIS

REACTIONS (1)
  - DEATH [None]
